FAERS Safety Report 4943021-2 (Version None)
Quarter: 2006Q1

REPORT INFORMATION
  Report Type: 
  Country: None (occurrence: None)
  Receive Date: 20060314
  Receipt Date: 20040115
  Transmission Date: 20060701
  Serious: Yes (Life-Threatening, Hospitalization)
  Sender: FDA-Public Use
  Company Number: SE-SANOFI-SYNTHELABO-D01200400

PATIENT
  Age: 68 Year
  Sex: Male
  Weight: 84 kg

DRUGS (4)
  1. FONDAPARINUX [Suspect]
     Dosage: 2.5MG PER DAY
     Route: 058
     Dates: start: 20040108, end: 20040112
  2. ASPIRIN [Concomitant]
  3. CYCLOKAPRON [Concomitant]
  4. LOW MOLECULAR WEIGHT HEPARIN [Concomitant]

REACTIONS (5)
  - CHOLECYSTITIS [None]
  - CLOSTRIDIAL INFECTION [None]
  - GRAFT THROMBOSIS [None]
  - MULTI-ORGAN FAILURE [None]
  - POST PROCEDURAL HAEMORRHAGE [None]
